FAERS Safety Report 4299631-1 (Version None)
Quarter: 2004Q1

REPORT INFORMATION
  Report Type: 
  Country: None (occurrence: None)
  Receive Date: 20040217
  Receipt Date: 20040130
  Transmission Date: 20041129
  Serious: Yes (Death, Life-Threatening, Hospitalization, Disabling)
  Sender: FDA-Public Use
  Company Number: 2003039545

PATIENT
  Age: 90 Year
  Sex: Male
  Weight: 47.5 kg

DRUGS (12)
  1. UNASYN [Suspect]
     Indication: PNEUMONIA ASPIRATION
     Dosage: 1.5 GRAM (BID), INTRAVENOUS
     Route: 042
     Dates: start: 20030910, end: 20030911
  2. STRONG NEO-MINOPHAGEN C (CYSTEINE, AMINOACETIC ACID, GLYCYRRHIZIC ACID [Suspect]
     Indication: LIVER DISORDER
     Dosage: UNKNOWN (DAILY), INTRAVENOUS
     Route: 042
     Dates: start: 20030910, end: 20030912
  3. FAMOTIDINE [Concomitant]
  4. AMLODIPINE BESYLATE [Concomitant]
  5. DOXAZOSIN MESYLATE [Concomitant]
  6. HICALIQ (GLUCOSE, POTASSIUM ACETATE, CALCIUM GLUCONATE, MAGNESIUM SULF [Concomitant]
  7. NEUROBION FOR INJECTION (PYRIDOXINE HYDROCHLORIDE, THIAMINE HYDROCHLOR [Concomitant]
  8. AMIZET (AMINO ACIDS NOS) [Concomitant]
  9. INTRAFAT (GLYCEROL, SOYA OIL, PHOSPHOLIPIDS) [Concomitant]
  10. ENSURE (VITAMINS NOS, MINERALS NOS, AMINO ACIDS NOS) [Concomitant]
  11. SODIUM CHLORIDE 0.9% [Concomitant]
  12. MINERAL TAB [Concomitant]

REACTIONS (8)
  - BLOOD ALKALINE PHOSPHATASE INCREASED [None]
  - BLOOD BILIRUBIN INCREASED [None]
  - BLOOD LACTATE DEHYDROGENASE INCREASED [None]
  - ENTEROBACTER INFECTION [None]
  - GAMMA-GLUTAMYLTRANSFERASE INCREASED [None]
  - PERITONEAL DIALYSIS [None]
  - RENAL FAILURE ACUTE [None]
  - WHITE BLOOD CELL COUNT INCREASED [None]
